FAERS Safety Report 19704053 (Version 1)
Quarter: 2021Q3

REPORT INFORMATION
  Report Type: Other
  Country: CH (occurrence: CH)
  Receive Date: 20210816
  Receipt Date: 20210816
  Transmission Date: 20211014
  Serious: Yes (Other)
  Sender: FDA-Public Use
  Company Number: CH-ROCHE-2887580

PATIENT
  Age: 48 Year
  Sex: Male

DRUGS (12)
  1. RITUXIMAB. [Suspect]
     Active Substance: RITUXIMAB
     Indication: PROPHYLAXIS AGAINST TRANSPLANT REJECTION
     Dosage: 20 MG OF RITUXIMAB DILUTED IN 4 ML OF NACL 0.9%, WITH CONSECUTIVE DOSES CONTAINING 30 MG OF RITUXIMA
     Route: 041
  2. BUSULFAN. [Concomitant]
     Active Substance: BUSULFAN
     Dosage: FOR 3 DAYS
  3. LEVETIRACETAM. [Concomitant]
     Active Substance: LEVETIRACETAM
  4. CYTARABINE. [Concomitant]
     Active Substance: CYTARABINE
  5. DAUNORUBICIN [Concomitant]
     Active Substance: DAUNORUBICIN
  6. POSACONAZOLE [Concomitant]
     Active Substance: POSACONAZOLE
  7. MEROPENEM. [Concomitant]
     Active Substance: MEROPENEM
  8. LEVOFLOXACIN. [Concomitant]
     Active Substance: LEVOFLOXACIN
  9. FLUDARABINE [Concomitant]
     Active Substance: FLUDARABINE PHOSPHATE
     Dosage: FOR 4 DAYS
  10. MYCOPHENOLATE MOFETIL. [Suspect]
     Active Substance: MYCOPHENOLATE MOFETIL
     Indication: PROPHYLAXIS AGAINST TRANSPLANT REJECTION
     Route: 065
  11. CICLOSPORIN [Suspect]
     Active Substance: CYCLOSPORINE
     Indication: PROPHYLAXIS AGAINST TRANSPLANT REJECTION
     Route: 065
  12. AMPHOTERICIN B. [Concomitant]
     Active Substance: AMPHOTERICIN B

REACTIONS (3)
  - Headache [Recovered/Resolved]
  - Epstein-Barr virus infection [Unknown]
  - Acute myeloid leukaemia recurrent [Unknown]
